FAERS Safety Report 22251547 (Version 1)
Quarter: 2023Q2

REPORT INFORMATION
  Report Type: Spontaneous
  Country: NL (occurrence: NL)
  Receive Date: 20230425
  Receipt Date: 20230425
  Transmission Date: 20230721
  Serious: Yes (Hospitalization)
  Sender: FDA-Public Use
  Company Number: NL-APIL-2312572US

PATIENT
  Sex: Male
  Weight: 75 kg

DRUGS (5)
  1. CARIPRAZINE HYDROCHLORIDE [Suspect]
     Active Substance: CARIPRAZINE HYDROCHLORIDE
     Indication: Psychotic disorder
     Dosage: 1DD1
     Dates: start: 20221117, end: 20230202
  2. CARIPRAZINE HYDROCHLORIDE [Suspect]
     Active Substance: CARIPRAZINE HYDROCHLORIDE
     Dosage: VAN 3 NAA 44 MG 1 DD 1
  3. CLOZAPINE [Concomitant]
     Active Substance: CLOZAPINE
     Dosage: 1 DD 3 TABLET VAN 100MG
  4. ADROVANCE [Concomitant]
     Active Substance: ALENDRONATE SODIUM\CHOLECALCIFEROL
     Dosage: 1 X PER WEEK 1 CAPSULE VAN 5600IE
  5. PALIPERIDONE [Concomitant]
     Active Substance: PALIPERIDONE
     Dosage: SUSPENSIE VOOR INJECTIE, 100 MG/ML (MILLIGRAM PER MILLILITER)

REACTIONS (1)
  - Mania [Recovering/Resolving]
